APPROVED DRUG PRODUCT: DOXEPIN HYDROCHLORIDE
Active Ingredient: DOXEPIN HYDROCHLORIDE
Strength: EQ 100MG BASE
Dosage Form/Route: CAPSULE;ORAL
Application: A071562 | Product #001
Applicant: SANDOZ INC
Approved: Mar 2, 1987 | RLD: No | RS: No | Type: DISCN